FAERS Safety Report 7783946-6 (Version None)
Quarter: 2011Q3

REPORT INFORMATION
  Report Type: 
  Country: None (occurrence: None)
  Receive Date: 20110928
  Receipt Date: 20110606
  Transmission Date: 20111222
  Serious: No
  Sender: FDA-Public Use
  Company Number: US-BAYER-2011-049255

PATIENT
  Age: 79 Year
  Sex: Female
  Weight: 82 kg

DRUGS (2)
  1. ALEVE (CAPLET) [Suspect]
     Indication: BACK PAIN
     Dosage: 2 DF, QID
  2. VYTORIN [Concomitant]

REACTIONS (2)
  - NO ADVERSE EVENT [None]
  - DRUG EFFECT DECREASED [None]
